FAERS Safety Report 24597184 (Version 1)
Quarter: 2024Q4

REPORT INFORMATION
  Report Type: Spontaneous
  Country: US (occurrence: US)
  Receive Date: 20241110
  Receipt Date: 20241110
  Transmission Date: 20250114
  Serious: No
  Sender: SANOFI AVENTIS
  Company Number: US-SA-2024SA305231

PATIENT
  Age: 71 Year
  Sex: Female
  Weight: 79.05 kg

DRUGS (1)
  1. DUPIXENT [Suspect]
     Active Substance: DUPILUMAB
     Indication: Cough variant asthma
     Dosage: 600 MG, 1X
     Route: 058
     Dates: start: 20241008, end: 20241008

REACTIONS (5)
  - Productive cough [Unknown]
  - Vomiting [Unknown]
  - Retching [Unknown]
  - Dizziness [Unknown]
  - Product use in unapproved indication [Unknown]

NARRATIVE: CASE EVENT DATE: 20240101
